FAERS Safety Report 7543786-X (Version None)
Quarter: 2011Q2

REPORT INFORMATION
  Report Type: 
  Country: None (occurrence: None)
  Receive Date: 20110613
  Receipt Date: 20110606
  Transmission Date: 20111010
  Serious: Yes (Other)
  Sender: FDA-Public Use
  Company Number: DE-GENZYME-FLUD-1001216

PATIENT
  Age: 14 Year
  Sex: Female

DRUGS (11)
  1. CYCLOSPORINE [Concomitant]
     Indication: PROPHYLAXIS AGAINST GRAFT VERSUS HOST DISEASE
     Dosage: UNK
     Route: 065
  2. INDIUM (111 IN) [Suspect]
     Indication: STEM CELL TRANSPLANT
  3. YTTRIUM (90 Y) [Suspect]
     Indication: STEM CELL TRANSPLANT
  4. ANTI-THYMOCYTE GLOBULIN NOS [Suspect]
     Indication: STEM CELL TRANSPLANT
  5. MELPHALAN HYDROCHLORIDE [Suspect]
     Indication: MYELODYSPLASTIC SYNDROME
     Dosage: 140 MG/M2, UNK
     Route: 065
  6. ANTI-THYMOCYTE GLOBULIN NOS [Suspect]
     Indication: PROPHYLAXIS AGAINST GRAFT VERSUS HOST DISEASE
     Dosage: UNK
     Route: 065
  7. INDIUM (111 IN) [Suspect]
     Indication: MYELODYSPLASTIC SYNDROME
     Dosage: 71 +/- 28 MBQ, ONCE
     Route: 042
  8. FLUDARA [Suspect]
     Indication: MYELODYSPLASTIC SYNDROME
     Dosage: 160 MG/M2, UNK
     Route: 065
  9. FLUDARA [Suspect]
     Indication: STEM CELL TRANSPLANT
  10. MELPHALAN HYDROCHLORIDE [Suspect]
     Indication: STEM CELL TRANSPLANT
  11. YTTRIUM (90 Y) [Suspect]
     Indication: MYELODYSPLASTIC SYNDROME
     Dosage: UNK
     Route: 042

REACTIONS (1)
  - MYELODYSPLASTIC SYNDROME [None]
